FAERS Safety Report 10310329 (Version 1)
Quarter: 2014Q3

REPORT INFORMATION
  Report Type: Spontaneous
  Country: US (occurrence: None)
  Receive Date: 20140716
  Receipt Date: 20140716
  Transmission Date: 20150326
  Serious: Yes (Hospitalization)
  Sender: FDA-Public Use
  Company Number: None

PATIENT
  Age: 70 Year
  Sex: Male
  Weight: 80.1 kg

DRUGS (2)
  1. LEUPROLIDE ACETATE. [Suspect]
     Active Substance: LEUPROLIDE ACETATE
  2. CASODEX [Suspect]
     Active Substance: BICALUTAMIDE

REACTIONS (3)
  - Blood glucose increased [None]
  - Dysarthria [None]
  - Gait disturbance [None]

NARRATIVE: CASE EVENT DATE: 20140701
